FAERS Safety Report 7011776-1 (Version None)
Quarter: 2010Q3

REPORT INFORMATION
  Report Type: 
  Country: None (occurrence: None)
  Receive Date: 20100923
  Receipt Date: 20090601
  Transmission Date: 20110219
  Serious: No
  Sender: FDA-Public Use
  Company Number: US-WYE-H09558209

PATIENT
  Sex: Female
  Weight: 54.93 kg

DRUGS (1)
  1. PREMARIN [Suspect]
     Indication: OESTROGEN REPLACEMENT THERAPY
     Route: 048
     Dates: start: 19880101

REACTIONS (4)
  - CHAPPED LIPS [None]
  - HYPERSENSITIVITY [None]
  - LIP SWELLING [None]
  - PARAESTHESIA ORAL [None]
